FAERS Safety Report 16104562 (Version 1)
Quarter: 2019Q1

REPORT INFORMATION
  Report Type: Spontaneous
  Country: US (occurrence: US)
  Receive Date: 20190322
  Receipt Date: 20190322
  Transmission Date: 20190418
  Serious: Yes (Hospitalization, Other)
  Sender: FDA-Public Use
  Company Number: US-RECORDATI RARE DISEASES INC.-US-R13005-19-00059

PATIENT
  Weight: .62 kg

DRUGS (1)
  1. METHAMPHETAMINE [Suspect]
     Active Substance: METHAMPHETAMINE
     Indication: PRODUCT USED FOR UNKNOWN INDICATION
     Route: 064

REACTIONS (5)
  - Intraventricular haemorrhage neonatal [Unknown]
  - Neonatal respiratory distress syndrome [Unknown]
  - Retinopathy of prematurity [Unknown]
  - Premature baby [Unknown]
  - Maternal exposure during pregnancy [Unknown]
